FAERS Safety Report 5753185-9 (Version None)
Quarter: 2008Q2

REPORT INFORMATION
  Report Type: 
  Country: None (occurrence: None)
  Receive Date: 20080530
  Receipt Date: 20080520
  Transmission Date: 20081010
  Serious: Yes (Life-Threatening, Hospitalization, Other)
  Sender: FDA-Public Use
  Company Number: ES-BAYER-200819010GPV

PATIENT
  Age: 70 Year
  Sex: Male

DRUGS (1)
  1. FLUDARABINE PHOSPHATE [Suspect]
     Indication: CHRONIC LYMPHOCYTIC LEUKAEMIA TRANSFORMATION
     Route: 048
     Dates: start: 20080301, end: 20080501

REACTIONS (2)
  - AUTOIMMUNE THROMBOCYTOPENIA [None]
  - GASTROINTESTINAL HAEMORRHAGE [None]
